FAERS Safety Report 9192036 (Version 2)
Quarter: 2013Q1

REPORT INFORMATION
  Report Type: Spontaneous
  Country: GB (occurrence: None)
  Receive Date: 20130325
  Receipt Date: 20130328
  Transmission Date: 20140127
  Serious: Yes (Disabling, Other)
  Sender: FDA-Public Use
  Company Number: AUR-APL-2013-02441

PATIENT
  Age: 36 Year
  Sex: Female
  Weight: 101.6 kg

DRUGS (5)
  1. QUETIAPINE [Suspect]
     Indication: BIPOLAR DISORDER
     Route: 048
     Dates: start: 20061001
  2. COD LIVER OIL (COD-LIVER OIL) [Concomitant]
  3. ZOPICLONE (ZOPICLONE) [Concomitant]
  4. BECONASE (BECLOMETASONE DIPROPIONATE) [Concomitant]
  5. CLINITAS [Concomitant]

REACTIONS (3)
  - Agoraphobia [None]
  - Exercise lack of [None]
  - Weight increased [None]
